FAERS Safety Report 25613039 (Version 1)
Quarter: 2025Q3

REPORT INFORMATION
  Report Type: Report from Study
  Country: EU (occurrence: EU)
  Receive Date: 20250728
  Receipt Date: 20250728
  Transmission Date: 20251021
  Serious: Yes (Other)
  Sender: ABBVIE
  Company Number: EU-ABBVIE-6176987

PATIENT
  Age: 63 Year
  Sex: Female

DRUGS (17)
  1. VENETOCLAX [Suspect]
     Active Substance: VENETOCLAX
     Indication: Acute myeloid leukaemia
     Route: 048
     Dates: start: 20241220, end: 20241221
  2. VENETOCLAX [Suspect]
     Active Substance: VENETOCLAX
     Indication: Acute myeloid leukaemia
     Route: 048
     Dates: start: 20241223, end: 20250116
  3. VENETOCLAX [Suspect]
     Active Substance: VENETOCLAX
     Indication: Acute myeloid leukaemia
     Route: 048
     Dates: start: 20241222, end: 20241222
  4. AZACITIDINE [Suspect]
     Active Substance: AZACITIDINE
     Indication: Acute myeloid leukaemia
     Dates: start: 20241220, end: 20241227
  5. DEXAMETHASONE SODIUM PHOSPHATE [Concomitant]
     Active Substance: DEXAMETHASONE SODIUM PHOSPHATE
     Indication: Hyperleukocytosis
     Route: 042
     Dates: start: 20241210, end: 20250101
  6. PANTOPRAZOLO ACCORD [Concomitant]
     Indication: Prophylaxis
     Route: 042
     Dates: start: 20241212
  7. LEVOFLOXACIN [Concomitant]
     Active Substance: LEVOFLOXACIN
     Indication: Product used for unknown indication
     Route: 048
     Dates: start: 20250103, end: 20250130
  8. ALLOPURINOL [Concomitant]
     Active Substance: ALLOPURINOL
     Indication: Prophylaxis
     Route: 048
     Dates: start: 20241220, end: 20241230
  9. LASIX [Concomitant]
     Active Substance: FUROSEMIDE
     Indication: Renal failure
     Route: 042
     Dates: start: 20241210, end: 20241216
  10. ONDANSETRON [Concomitant]
     Active Substance: ONDANSETRON
     Indication: Prophylaxis of nausea and vomiting
     Route: 042
     Dates: start: 20241220, end: 20241227
  11. PIPERACILLIN AND TAZOBACTAM [Concomitant]
     Active Substance: PIPERACILLIN SODIUM\TAZOBACTAM SODIUM
     Indication: Pneumonia escherichia
     Route: 042
     Dates: start: 20241219, end: 20250102
  12. HUMALOG [Concomitant]
     Active Substance: INSULIN LISPRO
     Indication: Cerebral haemorrhage
     Route: 058
     Dates: start: 20241218, end: 20241230
  13. ONCOCARBIL [Concomitant]
     Indication: Prophylaxis
     Route: 048
     Dates: start: 20241210, end: 20241216
  14. NORVASC [Concomitant]
     Active Substance: AMLODIPINE BESYLATE
     Indication: Hypertension
     Route: 048
     Dates: start: 20241217
  15. FILGRASTIM [Concomitant]
     Active Substance: FILGRASTIM
     Indication: Neutropenia
     Dates: start: 20241220
  16. Covid-19 vaccine [Concomitant]
     Indication: Product used for unknown indication
     Dates: end: 202105
  17. VALSARTAN [Concomitant]
     Active Substance: VALSARTAN
     Indication: Hypertension
     Route: 048
     Dates: start: 20241211

REACTIONS (4)
  - Disease progression [Recovered/Resolved]
  - Neutropenia [Recovered/Resolved]
  - Neutropenia [Recovered/Resolved]
  - Thrombocytopenia [Recovered/Resolved]

NARRATIVE: CASE EVENT DATE: 20241219
